FAERS Safety Report 18142679 (Version 5)
Quarter: 2020Q4

REPORT INFORMATION
  Report Type: Spontaneous
  Country: CZ (occurrence: CZ)
  Receive Date: 20200812
  Receipt Date: 20201027
  Transmission Date: 20210113
  Serious: Yes (Hospitalization)
  Sender: FDA-Public Use
  Company Number: CZ-CELGENEUS-CZE-20200801472

PATIENT
  Age: 82 Year
  Sex: Female
  Weight: 69 kg

DRUGS (92)
  1. AZACITIDINE. [Suspect]
     Active Substance: AZACITIDINE
     Dosage: 37.5 MILLIGRAM
     Route: 058
     Dates: start: 20190731, end: 20200726
  2. VENETOCLAX. [Concomitant]
     Active Substance: VENETOCLAX
     Indication: ACUTE MYELOID LEUKAEMIA
     Route: 065
  3. NOLPAZA [Concomitant]
     Active Substance: PANTOPRAZOLE SODIUM
     Indication: DYSPEPSIA
     Dosage: 20 MILLIGRAM
     Route: 048
     Dates: start: 20180109, end: 20180807
  4. KALNORMIN [Concomitant]
     Active Substance: POTASSIUM CHLORIDE
     Dosage: 2 GRAM
     Route: 048
     Dates: start: 20181012, end: 20190217
  5. ZOFRAN [Concomitant]
     Active Substance: ONDANSETRON HYDROCHLORIDE
     Indication: PROPHYLAXIS OF NAUSEA AND VOMITING
     Dosage: 8 MILLIGRAM
     Route: 040
     Dates: start: 20180223, end: 20180223
  6. ZOFRAN [Concomitant]
     Active Substance: ONDANSETRON HYDROCHLORIDE
     Dosage: 8 MILLIGRAM
     Route: 048
     Dates: start: 20180226, end: 20180227
  7. ZOFRAN [Concomitant]
     Active Substance: ONDANSETRON HYDROCHLORIDE
     Dosage: 8 MILLIGRAM
     Route: 048
     Dates: start: 20180409, end: 20180415
  8. ZOFRAN [Concomitant]
     Active Substance: ONDANSETRON HYDROCHLORIDE
     Dosage: 8 MILLIGRAM
     Route: 048
     Dates: start: 20190731, end: 20190806
  9. NOVALGIN [Concomitant]
     Indication: PAIN PROPHYLAXIS
     Dosage: 500 MILLIGRAM
     Route: 048
     Dates: start: 20180125, end: 20180125
  10. LACTATED RINGERS SOLUTION [Concomitant]
     Active Substance: CALCIUM CHLORIDE\POTASSIUM CHLORIDE\SODIUM CHLORIDE\SODIUM LACTATE
     Indication: PROPHYLAXIS
     Dosage: 4000 MILLILITER
     Route: 041
     Dates: start: 20180125, end: 20180201
  11. BETAHISTINI DIHYDROCHLORIDUM [Concomitant]
     Indication: VERTIGO
     Dosage: 48 MILLIGRAM
     Route: 048
     Dates: start: 2017
  12. XALOPTIC [Concomitant]
     Indication: GLAUCOMA
     Dosage: 1 DROPS
     Route: 047
     Dates: start: 201705
  13. CARZAP HCT [Concomitant]
     Dosage: 16/12.5 MG 1/2 TBL
     Route: 048
     Dates: start: 20180808
  14. DEGAN [Concomitant]
     Active Substance: METOCLOPRAMIDE HYDROCHLORIDE
     Dosage: 30 MILLIGRAM
     Route: 048
     Dates: start: 20180409, end: 20180807
  15. LACTULOSA [Concomitant]
     Active Substance: LACTULOSE
     Indication: CONSTIPATION PROPHYLAXIS
     Dosage: 10 MILLILITER
     Route: 048
     Dates: start: 20180127, end: 20180129
  16. KALNORMIN [Concomitant]
     Active Substance: POTASSIUM CHLORIDE
     Dosage: 2 GRAM
     Route: 048
     Dates: start: 20180723, end: 20180803
  17. KALNORMIN [Concomitant]
     Active Substance: POTASSIUM CHLORIDE
     Dosage: 1 GRAM
     Route: 048
     Dates: start: 20180926, end: 20180930
  18. KALNORMIN [Concomitant]
     Active Substance: POTASSIUM CHLORIDE
     Dosage: 2 GRAM
     Route: 048
     Dates: start: 20200108, end: 20200420
  19. CONDROSULF [Concomitant]
     Active Substance: SODIUM CHONDROITIN SULFATE
     Indication: ARTHRALGIA
     Route: 048
     Dates: start: 20200525
  20. BISEPTOL [Concomitant]
     Active Substance: SULFAMETHOXAZOLE\TRIMETHOPRIM
     Dosage: 480 MILLIGRAM
     Route: 048
     Dates: start: 20190731, end: 20190909
  21. ZOFRAN [Concomitant]
     Active Substance: ONDANSETRON HYDROCHLORIDE
     Dosage: 8 MILLIGRAM
     Route: 048
     Dates: start: 20191111, end: 20191117
  22. SERTRALINE [Concomitant]
     Active Substance: SERTRALINE HYDROCHLORIDE
     Indication: PROPHYLAXIS
  23. CARZAP HCT [Concomitant]
     Dosage: 16/12.5 MG 1/2 TBL
     Route: 048
     Dates: start: 20180224, end: 20180408
  24. CARZAP HCT [Concomitant]
     Dosage: 16/12.5 MG
     Route: 048
     Dates: start: 20180409, end: 20180804
  25. DEGAN [Concomitant]
     Active Substance: METOCLOPRAMIDE HYDROCHLORIDE
     Route: 048
     Dates: start: 20190211
  26. LACTULOSA [Concomitant]
     Active Substance: LACTULOSE
     Route: 048
     Dates: start: 20180223, end: 20180809
  27. LACTULOSA [Concomitant]
     Active Substance: LACTULOSE
     Dosage: 1 SPOON
     Route: 048
     Dates: start: 20191122
  28. KALNORMIN [Concomitant]
     Active Substance: POTASSIUM CHLORIDE
     Dosage: 2 GRAM
     Route: 048
     Dates: start: 20190218, end: 20190324
  29. CONDROSULF [Concomitant]
     Active Substance: SODIUM CHONDROITIN SULFATE
     Indication: PROPHYLAXIS
  30. URSOSAN [Concomitant]
     Active Substance: URSODIOL
     Indication: BLOOD ALKALINE PHOSPHATASE INCREASED
     Dosage: 500 MILLIGRAM
     Route: 048
     Dates: start: 20200720
  31. BISEPTOL [Concomitant]
     Active Substance: SULFAMETHOXAZOLE\TRIMETHOPRIM
     Dosage: 480 MILLIGRAM
     Route: 048
     Dates: start: 20181119, end: 20190128
  32. FENTANYL. [Concomitant]
     Active Substance: FENTANYL
     Indication: CONTUSION
  33. ZOFRAN [Concomitant]
     Active Substance: ONDANSETRON HYDROCHLORIDE
     Dosage: 8 MILLIGRAM
     Route: 048
     Dates: start: 20180709, end: 20180715
  34. ZOFRAN [Concomitant]
     Active Substance: ONDANSETRON HYDROCHLORIDE
     Dosage: 8 MILLIGRAM
     Route: 048
     Dates: start: 20181119, end: 20181125
  35. ZOFRAN [Concomitant]
     Active Substance: ONDANSETRON HYDROCHLORIDE
     Dosage: 8 MILLIGRAM
     Route: 048
     Dates: start: 20200720, end: 20200726
  36. NOVALGIN [Concomitant]
     Indication: BACK PAIN
     Dosage: 1000 MILLIGRAM
     Route: 048
     Dates: start: 20180808, end: 20180808
  37. AZACITIDINE. [Suspect]
     Active Substance: AZACITIDINE
     Indication: ACUTE MYELOID LEUKAEMIA
     Dosage: 75 MILLIGRAM/SQ. METER
     Route: 058
     Dates: start: 20180125, end: 20190203
  38. AZACITIDINE. [Suspect]
     Active Substance: AZACITIDINE
     Dosage: 37.5 MILLIGRAM
     Route: 058
     Dates: start: 20200824
  39. ALLOPURINOL. [Concomitant]
     Active Substance: ALLOPURINOL
     Indication: PROPHYLAXIS
     Dosage: 100 MILLIGRAM
     Route: 048
     Dates: start: 20180124, end: 20180124
  40. ALLOPURINOL. [Concomitant]
     Active Substance: ALLOPURINOL
     Dosage: 300 MILLIGRAM
     Route: 048
     Dates: start: 20180125, end: 20180129
  41. DEGAN [Concomitant]
     Active Substance: METOCLOPRAMIDE HYDROCHLORIDE
     Dosage: 30 MILLIGRAM
     Route: 048
     Dates: start: 20190128, end: 20190210
  42. NOLPAZA [Concomitant]
     Active Substance: PANTOPRAZOLE SODIUM
     Route: 048
     Dates: start: 20190731
  43. KALNORMIN [Concomitant]
     Active Substance: POTASSIUM CHLORIDE
     Dosage: 2 GRAM
     Route: 048
     Dates: start: 20191122, end: 20191124
  44. BISEPTOL [Concomitant]
     Active Substance: SULFAMETHOXAZOLE\TRIMETHOPRIM
     Indication: INFECTION PROPHYLAXIS
     Dosage: 480 MILLIGRAM
     Route: 048
     Dates: start: 20180109, end: 20180926
  45. BISEPTOL [Concomitant]
     Active Substance: SULFAMETHOXAZOLE\TRIMETHOPRIM
     Dosage: 480 MILLIGRAM
     Route: 048
     Dates: start: 20190318, end: 20190503
  46. FENTANYL. [Concomitant]
     Active Substance: FENTANYL
     Indication: UPPER LIMB FRACTURE
  47. LACTATED RINGERS SOLUTION [Concomitant]
     Active Substance: CALCIUM CHLORIDE\POTASSIUM CHLORIDE\SODIUM CHLORIDE\SODIUM LACTATE
     Dosage: 1000 MILLILITER
     Route: 041
     Dates: start: 20180126, end: 20180127
  48. SIMBRINZA [Concomitant]
     Active Substance: BRIMONIDINE TARTRATE\BRINZOLAMIDE
     Indication: GLAUCOMA
     Dosage: 2 DROPS
     Route: 047
     Dates: start: 201705
  49. AGEN [Concomitant]
     Active Substance: AMLODIPINE BESYLATE
     Indication: HYPERTENSION
     Dosage: 5 MILLIGRAM
     Route: 048
     Dates: start: 20180927
  50. DEGAN [Concomitant]
     Active Substance: METOCLOPRAMIDE HYDROCHLORIDE
     Indication: PROPHYLAXIS OF NAUSEA AND VOMITING
     Dosage: 20 MILLIGRAM
     Route: 048
     Dates: start: 20180125, end: 20180125
  51. DEGAN [Concomitant]
     Active Substance: METOCLOPRAMIDE HYDROCHLORIDE
     Indication: VOMITING
     Dosage: 30 MILLIGRAM
     Route: 048
     Dates: start: 20180126, end: 20180201
  52. DEGAN [Concomitant]
     Active Substance: METOCLOPRAMIDE HYDROCHLORIDE
     Dosage: 30 MILLIGRAM
     Route: 048
     Dates: start: 20181119, end: 20181125
  53. NOLPAZA [Concomitant]
     Active Substance: PANTOPRAZOLE SODIUM
     Indication: GASTRIC DISORDER
     Route: 048
     Dates: start: 20180810, end: 20180905
  54. KALNORMIN [Concomitant]
     Active Substance: POTASSIUM CHLORIDE
     Dosage: 1 GRAM
     Route: 048
     Dates: start: 20180221, end: 20180221
  55. KALNORMIN [Concomitant]
     Active Substance: POTASSIUM CHLORIDE
     Dosage: 1 GRAM
     Route: 048
     Dates: start: 20180415, end: 20180605
  56. KALNORMIN [Concomitant]
     Active Substance: POTASSIUM CHLORIDE
     Dosage: 3 GRAM
     Route: 048
     Dates: start: 20180606, end: 20180722
  57. KALNORMIN [Concomitant]
     Active Substance: POTASSIUM CHLORIDE
     Dosage: 3 GRAM
     Route: 048
     Dates: start: 20191125, end: 20191203
  58. KALNORMIN [Concomitant]
     Active Substance: POTASSIUM CHLORIDE
     Dosage: 3 GRAM
     Route: 048
     Dates: start: 20191204, end: 20200107
  59. KALNORMIN [Concomitant]
     Active Substance: POTASSIUM CHLORIDE
     Dosage: 1 GRAM
     Route: 048
     Dates: start: 20200421, end: 20200511
  60. NEUROL [Concomitant]
     Indication: PROPHYLAXIS
     Route: 048
     Dates: start: 20200518
  61. ZOFRAN [Concomitant]
     Active Substance: ONDANSETRON HYDROCHLORIDE
     Indication: VOMITING
     Route: 048
     Dates: start: 20180223, end: 20180225
  62. ZOFRAN [Concomitant]
     Active Substance: ONDANSETRON HYDROCHLORIDE
     Dosage: 8 MILLIGRAM
     Route: 048
     Dates: start: 20190128, end: 20190203
  63. ZOFRAN [Concomitant]
     Active Substance: ONDANSETRON HYDROCHLORIDE
     Dosage: 8 MILLIGRAM
     Route: 048
     Dates: start: 20190930, end: 20191006
  64. ZOFRAN [Concomitant]
     Active Substance: ONDANSETRON HYDROCHLORIDE
     Dosage: 8 MILLIGRAM
     Route: 048
     Dates: start: 20200601, end: 20200607
  65. NOVALGIN [Concomitant]
     Indication: PULMONARY EMBOLISM
     Dosage: 500 MILLIGRAM
     Route: 048
     Dates: start: 20180809, end: 20180809
  66. KALNORMIN [Concomitant]
     Active Substance: POTASSIUM CHLORIDE
     Dosage: 3 GRAM
     Route: 048
     Dates: start: 20190522, end: 20190602
  67. KALNORMIN [Concomitant]
     Active Substance: POTASSIUM CHLORIDE
     Dosage: 2 GRAM
     Route: 048
     Dates: start: 20190615, end: 20191121
  68. KALNORMIN [Concomitant]
     Active Substance: POTASSIUM CHLORIDE
     Dosage: 1 GRAM
     Route: 048
     Dates: start: 20200518
  69. URSOSAN [Concomitant]
     Active Substance: URSODIOL
     Indication: LIVER DISORDER
     Dosage: 250 MILLIGRAM
     Route: 048
     Dates: start: 20181005, end: 20200522
  70. BISEPTOL [Concomitant]
     Active Substance: SULFAMETHOXAZOLE\TRIMETHOPRIM
     Dosage: 480 MILLIGRAM
     Route: 048
     Dates: start: 20190930
  71. ZOFRAN [Concomitant]
     Active Substance: ONDANSETRON HYDROCHLORIDE
     Dosage: 8 MILLIGRAM
     Route: 048
     Dates: start: 20200224, end: 20200301
  72. SERTRALINE [Concomitant]
     Active Substance: SERTRALINE HYDROCHLORIDE
     Indication: PROPHYLAXIS
     Dosage: 50 MILLIGRAM
     Route: 048
     Dates: start: 201412
  73. CARZAP HCT [Concomitant]
     Indication: HYPERTENSION
     Dosage: 16/12.5 MG
     Route: 048
     Dates: start: 2007, end: 20180223
  74. DEGAN [Concomitant]
     Active Substance: METOCLOPRAMIDE HYDROCHLORIDE
     Route: 048
     Dates: start: 20180202, end: 20180313
  75. KALNORMIN [Concomitant]
     Active Substance: POTASSIUM CHLORIDE
     Dosage: 2 GRAM
     Route: 048
     Dates: start: 20180125, end: 20180220
  76. KALNORMIN [Concomitant]
     Active Substance: POTASSIUM CHLORIDE
     Dosage: 2 GRAM
     Route: 048
     Dates: start: 20190520, end: 20190521
  77. KALNORMIN [Concomitant]
     Active Substance: POTASSIUM CHLORIDE
     Dosage: 2 GRAM
     Route: 048
     Dates: start: 20191122, end: 20191124
  78. ZOFRAN [Concomitant]
     Active Substance: ONDANSETRON HYDROCHLORIDE
     Dosage: 8 MILLIGRAM
     Route: 048
     Dates: start: 20180509, end: 20180515
  79. ZOFRAN [Concomitant]
     Active Substance: ONDANSETRON HYDROCHLORIDE
     Dosage: 8 MILLIGRAM
     Route: 048
     Dates: start: 20180611, end: 20180617
  80. ZOFRAN [Concomitant]
     Active Substance: ONDANSETRON HYDROCHLORIDE
     Dosage: 8 MILLIGRAM
     Route: 048
     Dates: start: 20200108, end: 20200114
  81. ZOFRAN [Concomitant]
     Active Substance: ONDANSETRON HYDROCHLORIDE
     Dosage: 8 MILLIGRAM
     Route: 048
     Dates: start: 20200421, end: 20200427
  82. CARZAP HCT [Concomitant]
     Dosage: 16/12.5 MG
     Route: 048
     Dates: start: 20180806, end: 20180806
  83. KALNORMIN [Concomitant]
     Active Substance: POTASSIUM CHLORIDE
     Indication: PROPHYLAXIS
     Dosage: 1 GRAM
     Route: 048
     Dates: start: 20180118, end: 20180125
  84. KALNORMIN [Concomitant]
     Active Substance: POTASSIUM CHLORIDE
     Dosage: 2 GRAM
     Route: 048
     Dates: start: 20180412, end: 20180414
  85. KALNORMIN [Concomitant]
     Active Substance: POTASSIUM CHLORIDE
     Dosage: 2 GRAM
     Route: 048
     Dates: start: 20180811, end: 20180925
  86. KALNORMIN [Concomitant]
     Active Substance: POTASSIUM CHLORIDE
     Dosage: 2 GRAM
     Route: 048
     Dates: start: 20181001, end: 20181004
  87. KALNORMIN [Concomitant]
     Active Substance: POTASSIUM CHLORIDE
     Dosage: 3 GRAM
     Route: 048
     Dates: start: 20181005, end: 20181011
  88. KALNORMIN [Concomitant]
     Active Substance: POTASSIUM CHLORIDE
     Dosage: 2 GRAM
     Route: 048
     Dates: start: 20190325, end: 20190519
  89. KALNORMIN [Concomitant]
     Active Substance: POTASSIUM CHLORIDE
     Dosage: 3 GRAM
     Route: 048
     Dates: start: 20190603, end: 20190612
  90. URSOSAN [Concomitant]
     Active Substance: URSODIOL
     Indication: GAMMA-GLUTAMYLTRANSFERASE INCREASED
     Dosage: 750 MILLIGRAM
     Route: 048
     Dates: start: 20180921, end: 20181004
  91. FENTANYL. [Concomitant]
     Active Substance: FENTANYL
     Indication: PAIN
     Route: 062
     Dates: start: 202007
  92. NOVALGIN [Concomitant]
     Indication: COR PULMONALE
     Route: 048
     Dates: start: 20180810

REACTIONS (1)
  - Pulmonary embolism [Recovered/Resolved]

NARRATIVE: CASE EVENT DATE: 20200727
